FAERS Safety Report 7068050-7 (Version None)
Quarter: 2010Q4

REPORT INFORMATION
  Report Type: 
  Country: None (occurrence: None)
  Receive Date: 20101028
  Receipt Date: 20101019
  Transmission Date: 20110411
  Serious: Yes (Other)
  Sender: FDA-Public Use
  Company Number: JP-SANOFI-AVENTIS-2010SA063767

PATIENT
  Age: 75 Year
  Sex: Female

DRUGS (2)
  1. PLAVIX [Suspect]
     Indication: PRODUCT USED FOR UNKNOWN INDICATION
     Dosage: DOSAGE UNKNOWN
     Route: 048
     Dates: start: 20091201
  2. DIGITALIS TAB [Concomitant]
     Indication: PRODUCT USED FOR UNKNOWN INDICATION
     Dosage: DOSAGE UNKNOWN
     Route: 065

REACTIONS (3)
  - ATRIAL FIBRILLATION [None]
  - HEPATIC FUNCTION ABNORMAL [None]
  - PLATELET COUNT INCREASED [None]
